APPROVED DRUG PRODUCT: CLOMIPRAMINE HYDROCHLORIDE
Active Ingredient: CLOMIPRAMINE HYDROCHLORIDE
Strength: 25MG
Dosage Form/Route: CAPSULE;ORAL
Application: A074849 | Product #001
Applicant: TEVA PHARMACEUTICALS USA INC
Approved: Apr 4, 1997 | RLD: No | RS: No | Type: DISCN